FAERS Safety Report 15778341 (Version 1)
Quarter: 2018Q4

REPORT INFORMATION
  Report Type: Spontaneous
  Country: US (occurrence: US)
  Receive Date: 20181231
  Receipt Date: 20181231
  Transmission Date: 20190205
  Serious: Yes (Other)
  Sender: FDA-Public Use
  Company Number: US-ALEXION PHARMACEUTICALS INC.-A201817033

PATIENT
  Sex: Male

DRUGS (1)
  1. SOLIRIS [Suspect]
     Active Substance: ECULIZUMAB
     Indication: ATYPICAL HAEMOLYTIC URAEMIC SYNDROME
     Route: 065

REACTIONS (6)
  - Back pain [Unknown]
  - Blood pressure increased [Not Recovered/Not Resolved]
  - Oedema peripheral [Unknown]
  - Renal impairment [Not Recovered/Not Resolved]
  - Dyspnoea [Not Recovered/Not Resolved]
  - Haemolysis [Unknown]
